FAERS Safety Report 6608967-8 (Version None)
Quarter: 2010Q1

REPORT INFORMATION
  Report Type: 
  Country: None (occurrence: None)
  Receive Date: 20100301
  Receipt Date: 20100217
  Transmission Date: 20100710
  Serious: Yes (Other)
  Sender: FDA-Public Use
  Company Number: CA-PFIZER INC-2010021371

PATIENT
  Age: 45 Year
  Sex: Female

DRUGS (5)
  1. ZELDOX [Suspect]
     Dosage: 40 MG, UNK
     Dates: start: 20100216
  2. TOPAMAX [Concomitant]
  3. LAMICTAL [Concomitant]
  4. WELLBUTRIN [Concomitant]
  5. CYMBALTA [Concomitant]

REACTIONS (6)
  - BLOOD GLUCOSE INCREASED [None]
  - DIARRHOEA [None]
  - HALLUCINATION, VISUAL [None]
  - PYREXIA [None]
  - ROAD TRAFFIC ACCIDENT [None]
  - WEIGHT DECREASED [None]
